FAERS Safety Report 7032370-2 (Version None)
Quarter: 2010Q4

REPORT INFORMATION
  Report Type: 
  Country: None (occurrence: None)
  Receive Date: 20101007
  Receipt Date: 20100727
  Transmission Date: 20110411
  Serious: Yes (Hospitalization)
  Sender: FDA-Public Use
  Company Number: ES-BRISTOL-MYERS SQUIBB COMPANY-15222219

PATIENT
  Age: 58 Year
  Sex: Male

DRUGS (2)
  1. CETUXIMAB [Suspect]
     Indication: HEAD AND NECK CANCER
     Route: 042
     Dates: start: 20090731, end: 20090909
  2. RADIOTHERAPY [Suspect]
     Indication: HEAD AND NECK CANCER
     Dosage: CONTINUING: 1DF=70 GY; RECENT RADIOTHERAPY ON 24SEP09.
     Dates: start: 20090806

REACTIONS (2)
  - POST PROCEDURAL FISTULA [None]
  - RADIATION SKIN INJURY [None]
